FAERS Safety Report 15009623 (Version 1)
Quarter: 2018Q2

REPORT INFORMATION
  Report Type: Spontaneous
  Country: MX (occurrence: MX)
  Receive Date: 20180614
  Receipt Date: 20180614
  Transmission Date: 20180711
  Serious: Yes (Other)
  Sender: FDA-Public Use
  Company Number: MX-ROCHE-2139933

PATIENT
  Age: 50 Year
  Sex: Female
  Weight: 68 kg

DRUGS (3)
  1. TRASTUZUMAB. [Suspect]
     Active Substance: TRASTUZUMAB
     Indication: BREAST CANCER
     Dosage: PREVIOUS TREATMENT
     Route: 042
  2. TAXOL [Suspect]
     Active Substance: PACLITAXEL
     Indication: BREAST CANCER
     Dosage: PREVIOUS TREATMENT
     Route: 065
  3. LAPATINIB [Concomitant]
     Active Substance: LAPATINIB
     Route: 065

REACTIONS (1)
  - Metastases to central nervous system [Unknown]
